FAERS Safety Report 5469463-7 (Version None)
Quarter: 2007Q3

REPORT INFORMATION
  Report Type: 
  Country: None (occurrence: None)
  Receive Date: 20070820
  Receipt Date: 20070427
  Transmission Date: 20080115
  Serious: No
  Sender: FDA-Public Use
  Company Number: WAES 0704USA06561

PATIENT
  Age: 64 Year
  Sex: Female

DRUGS (7)
  1. JANUVIA [Suspect]
     Dosage: PO
     Route: 048
     Dates: start: 20070219, end: 20070427
  2. AMBIEN [Concomitant]
  3. LANTUS [Concomitant]
  4. LIPITOR [Concomitant]
  5. LOTREL [Concomitant]
  6. PROTONIX [Concomitant]
  7. METFORMIN [Concomitant]

REACTIONS (1)
  - RASH PRURITIC [None]
